FAERS Safety Report 23845669 (Version 2)
Quarter: 2024Q2

REPORT INFORMATION
  Report Type: Report from Study
  Country: US (occurrence: US)
  Receive Date: 20240511
  Receipt Date: 20240515
  Transmission Date: 20240717
  Serious: Yes (Death, Hospitalization, Other)
  Sender: FDA-Public Use
  Company Number: US-TAKEDA-2024TUS043640

PATIENT
  Sex: Female

DRUGS (1)
  1. FRUQUINTINIB [Suspect]
     Active Substance: FRUQUINTINIB
     Indication: Appendix cancer
     Dosage: 5 MILLIGRAM
     Route: 048

REACTIONS (4)
  - Death [Fatal]
  - Dizziness [Unknown]
  - Nausea [Unknown]
  - Obstruction [Unknown]
